FAERS Safety Report 15262300 (Version 16)
Quarter: 2020Q1

REPORT INFORMATION
  Report Type: Report from Study
  Country: US (occurrence: US)
  Receive Date: 20180809
  Receipt Date: 20200228
  Transmission Date: 20200409
  Serious: Yes (Hospitalization)
  Sender: FDA-Public Use
  Company Number: US-ACTELION-A-NJ2017-164638

PATIENT
  Age: 63 Year
  Sex: Female
  Weight: 43.08 kg

DRUGS (9)
  1. VELETRI [Suspect]
     Active Substance: EPOPROSTENOL
     Dosage: UNK
     Route: 042
  2. LETAIRIS [Concomitant]
     Active Substance: AMBRISENTAN
  3. VELETRI [Suspect]
     Active Substance: EPOPROSTENOL
     Dosage: 12 NG/KG, PER MIN
     Route: 042
  4. VELETRI [Suspect]
     Active Substance: EPOPROSTENOL
     Dosage: 20 NG/KG, PER MIN
     Route: 042
  5. VELETRI [Suspect]
     Active Substance: EPOPROSTENOL
     Indication: PULMONARY HYPERTENSION
     Dosage: 20 NG/KG, PER MIN
     Route: 042
  6. VELETRI [Suspect]
     Active Substance: EPOPROSTENOL
     Dosage: 20 NG/KG, PER MIN
     Route: 042
  7. VELETRI [Suspect]
     Active Substance: EPOPROSTENOL
     Dosage: 5 NG/KG, PER MIN
     Route: 042
  8. ADEMPAS [Concomitant]
     Active Substance: RIOCIGUAT
  9. VELETRI [Suspect]
     Active Substance: EPOPROSTENOL
     Dosage: 4 NG/KG, PER MIN
     Route: 042

REACTIONS (45)
  - Pleural effusion [Unknown]
  - Dyspnoea exertional [Unknown]
  - Weight decreased [Unknown]
  - Oxygen saturation decreased [Unknown]
  - Blood magnesium decreased [Unknown]
  - Therapeutic product effect incomplete [Unknown]
  - Neck pain [Unknown]
  - Nasopharyngitis [Unknown]
  - Endodontic procedure [Unknown]
  - Tooth abscess [Unknown]
  - Dyspnoea [Unknown]
  - Catheter site irritation [Unknown]
  - Catheterisation cardiac [Unknown]
  - Wrist fracture [Unknown]
  - Rash papular [Unknown]
  - Hospitalisation [Unknown]
  - Catheter site pruritus [Unknown]
  - Catheter site vesicles [Unknown]
  - Product dose omission [Recovered/Resolved]
  - Rash [Not Recovered/Not Resolved]
  - Pain in jaw [Not Recovered/Not Resolved]
  - Asthenia [Unknown]
  - Malaise [Unknown]
  - Skin irritation [Unknown]
  - Unevaluable event [Unknown]
  - Fall [Unknown]
  - Joint injury [Unknown]
  - Rash erythematous [Unknown]
  - Scleroderma [Not Recovered/Not Resolved]
  - Nausea [Unknown]
  - Faeces soft [Unknown]
  - Cough [Unknown]
  - Decreased appetite [Unknown]
  - Back pain [Unknown]
  - Fluid retention [Unknown]
  - Multiple allergies [Unknown]
  - Device dislocation [Recovered/Resolved]
  - Hypotension [Unknown]
  - Haemoglobin decreased [Unknown]
  - Fluid overload [Recovering/Resolving]
  - Headache [Unknown]
  - Diarrhoea [Recovering/Resolving]
  - Clostridium test positive [Recovered/Resolved]
  - Pruritus [Not Recovered/Not Resolved]
  - Skin ulcer [Not Recovered/Not Resolved]

NARRATIVE: CASE EVENT DATE: 201802
